FAERS Safety Report 16905718 (Version 1)
Quarter: 2019Q4

REPORT INFORMATION
  Report Type: Other
  Country: US (occurrence: US)
  Receive Date: 20191010
  Receipt Date: 20191010
  Transmission Date: 20200122
  Serious: Yes (Other)
  Sender: FDA-Public Use
  Company Number: US-ALSI-201900412

PATIENT
  Age: 61 Year
  Sex: Female

DRUGS (1)
  1. HELIUM. [Suspect]
     Active Substance: HELIUM
     Indication: CARDIAC FAILURE

REACTIONS (2)
  - Off label use [Recovered/Resolved]
  - Cerebral gas embolism [Recovered/Resolved]
